FAERS Safety Report 18664608 (Version 2)
Quarter: 2021Q1

REPORT INFORMATION
  Report Type: Report from Study
  Country: TH (occurrence: TH)
  Receive Date: 20201225
  Receipt Date: 20210119
  Transmission Date: 20210419
  Serious: Yes (Death, Hospitalization)
  Sender: FDA-Public Use
  Company Number: TH-ROCHE-2686848

PATIENT
  Age: 68 Year
  Sex: Female
  Weight: 37 kg

DRUGS (16)
  1. RANITIDINE. [Concomitant]
     Active Substance: RANITIDINE
     Route: 042
     Dates: start: 20200915, end: 20200915
  2. ROPECT [Concomitant]
     Indication: COUGH
     Route: 048
     Dates: start: 20201113, end: 20201116
  3. PACLITAXEL. [Suspect]
     Active Substance: PACLITAXEL
     Indication: TRIPLE NEGATIVE BREAST CANCER
     Dosage: START DATE OF MOST RECENT DOSE OF PACLITAXEL, 80 MG/M2 PRIOR TO AE/SAE 21/SEP/2020 11:15 AM?START DA
     Route: 042
     Dates: start: 20200915
  4. IPATASERTIB. [Suspect]
     Active Substance: IPATASERTIB
     Indication: TRIPLE NEGATIVE BREAST CANCER
     Dosage: MOST RECENT DOSE OF IPATASERTIB PRIOR TO AE 23/SEP/2020 200 MG TABLET?MOST RECENT DOSE OF IPATASERTI
     Route: 048
     Dates: start: 20200915
  5. ATEZOLIZUMAB. [Suspect]
     Active Substance: ATEZOLIZUMAB
     Indication: TRIPLE NEGATIVE BREAST CANCER
     Dosage: START DATE OF MOST RECENT DOSE OF STUDY DRUG PRIOR TO AE/SAE 15/SEP/2020 9:40 AM WHICH ENDED AT 10:4
     Route: 041
     Dates: start: 20200915
  6. METFORMIN [Concomitant]
     Active Substance: METFORMIN HYDROCHLORIDE
     Route: 048
     Dates: start: 20200829, end: 20200831
  7. LORAZEPAM. [Concomitant]
     Active Substance: LORAZEPAM
     Route: 048
     Dates: start: 20200915, end: 20201209
  8. AMOXICILLIN. [Concomitant]
     Active Substance: AMOXICILLIN
     Route: 048
     Dates: start: 20201016, end: 20201022
  9. METFORMIN [Concomitant]
     Active Substance: METFORMIN HYDROCHLORIDE
     Indication: DIABETES MELLITUS
     Dates: start: 20200817, end: 20200828
  10. ALOXI [Concomitant]
     Active Substance: PALONOSETRON HYDROCHLORIDE
     Route: 042
     Dates: start: 20200915, end: 20200922
  11. DEXAMETHASONE. [Concomitant]
     Active Substance: DEXAMETHASONE
     Route: 042
     Dates: start: 20200915, end: 20200922
  12. METFORMIN [Concomitant]
     Active Substance: METFORMIN HYDROCHLORIDE
     Route: 048
     Dates: start: 20200829, end: 20200831
  13. PREDNISOLONE. [Concomitant]
     Active Substance: PREDNISOLONE
     Route: 048
     Dates: start: 20200916, end: 20200917
  14. SENNOSIDE [Concomitant]
     Active Substance: SENNOSIDES
     Indication: CONSTIPATION
     Route: 048
     Dates: start: 20200914, end: 20200921
  15. PARACETAMOL [Concomitant]
     Active Substance: ACETAMINOPHEN
     Indication: TOOTHACHE
     Route: 048
     Dates: start: 20201008, end: 20201016
  16. IBUPROFEN. [Concomitant]
     Active Substance: IBUPROFEN
     Indication: TOOTHACHE
     Route: 048
     Dates: start: 20201016, end: 20201016

REACTIONS (2)
  - Diarrhoea [Recovering/Resolving]
  - Fatigue [Not Recovered/Not Resolved]

NARRATIVE: CASE EVENT DATE: 20200924
